FAERS Safety Report 9654716 (Version 2)
Quarter: 2013Q4

REPORT INFORMATION
  Report Type: Report from Study
  Country: CA (occurrence: CA)
  Receive Date: 20131029
  Receipt Date: 20131107
  Transmission Date: 20140711
  Serious: Yes (Hospitalization)
  Sender: FDA-Public Use
  Company Number: PHHO2013CA013822

PATIENT
  Age: 73 Year
  Sex: Female
  Weight: 56.9 kg

DRUGS (4)
  1. LBH589 [Suspect]
     Indication: NON-HODGKIN^S LYMPHOMA
     Dosage: 30 MG, UNK
     Route: 048
     Dates: start: 20130923, end: 20130930
  2. LBH589 [Suspect]
     Dosage: 25 MG, UNK
     Route: 048
     Dates: start: 20131016, end: 20131018
  3. LEVOFLOXACIN [Suspect]
     Indication: SINUSITIS
     Dosage: 500 MG, QD
     Dates: start: 20131016, end: 20131018
  4. RABEPRAZOLE [Concomitant]
     Indication: GASTROOESOPHAGEAL REFLUX DISEASE
     Dosage: 20 MG, QD
     Dates: start: 20130929

REACTIONS (3)
  - Nausea [Recovering/Resolving]
  - Vomiting [Recovered/Resolved]
  - Headache [Recovered/Resolved]
